FAERS Safety Report 5444507-7 (Version None)
Quarter: 2007Q3

REPORT INFORMATION
  Report Type: 
  Country: None (occurrence: None)
  Receive Date: 20070904
  Receipt Date: 20070904
  Transmission Date: 20080115
  Serious: Yes (Life-Threatening, Hospitalization)
  Sender: FDA-Public Use
  Company Number: None

PATIENT
  Age: 82 Year
  Sex: Male
  Weight: 98.6 kg

DRUGS (11)
  1. CLOPIDOGREL [Suspect]
     Indication: CEREBROVASCULAR ACCIDENT
     Dosage: 75MG DAILY PO
     Route: 048
  2. NABUMETONE [Suspect]
     Indication: OSTEOARTHRITIS
     Dosage: 500MG BID PO
     Route: 048
  3. LISINOPRIL [Concomitant]
  4. METOPROLOL TARTRATE [Concomitant]
  5. ASPIRIN [Concomitant]
  6. INSULIN [Concomitant]
  7. PHENYTOIN [Concomitant]
  8. AMLODIPINE [Concomitant]
  9. TAMSULOSIN HCL [Concomitant]
  10. VENLAFAXINE SR [Concomitant]
  11. OLMESARTAN MEDOXOMIL [Concomitant]

REACTIONS (6)
  - ABDOMINAL PAIN [None]
  - ACUTE MYOCARDIAL INFARCTION [None]
  - FEELING ABNORMAL [None]
  - HYPOVOLAEMIA [None]
  - MALAISE [None]
  - UPPER GASTROINTESTINAL HAEMORRHAGE [None]
